FAERS Safety Report 8969406 (Version 1)
Quarter: 2012Q4

REPORT INFORMATION
  Report Type: 
  Country: BR (occurrence: BR)
  Receive Date: 20121218
  Receipt Date: 20121218
  Transmission Date: 20130627
  Serious: Yes (Other)
  Sender: FDA-Public Use
  Company Number: BR-AMGEN-BRASP2012079098

PATIENT
  Age: 52 Year
  Sex: Male
  Weight: 92.97 kg

DRUGS (1)
  1. ENBREL [Suspect]
     Indication: PSORIASIS
     Dosage: 50 mg, 1x/week
     Route: 058
     Dates: start: 20120809

REACTIONS (1)
  - Tooth infection [Unknown]
